FAERS Safety Report 18254787 (Version 2)
Quarter: 2020Q4

REPORT INFORMATION
  Report Type: Spontaneous
  Country: US (occurrence: US)
  Receive Date: 20200911
  Receipt Date: 20201211
  Transmission Date: 20210113
  Serious: No
  Sender: FDA-Public Use
  Company Number: US-RECORDATI RARE DISEASES-2089644

PATIENT
  Age: 24 Year
  Sex: Female

DRUGS (1)
  1. SIGNIFOR LAR [Suspect]
     Active Substance: PASIREOTIDE PAMOATE
     Indication: ACROMEGALY
     Dates: start: 20200721

REACTIONS (5)
  - Fatigue [Unknown]
  - Blood glucose increased [Unknown]
  - Constipation [Unknown]
  - Urine output increased [Unknown]
  - Thirst [Unknown]
